FAERS Safety Report 7258637-0 (Version None)
Quarter: 2011Q1

REPORT INFORMATION
  Report Type: 
  Country: None (occurrence: None)
  Receive Date: 20110129
  Receipt Date: 20100708
  Transmission Date: 20110831
  Serious: No
  Sender: FDA-Public Use
  Company Number: US-ABBOTT-09P-163-0563720-00

PATIENT
  Sex: Female
  Weight: 66.284 kg

DRUGS (10)
  1. SPIRIVA [Concomitant]
     Indication: EMPHYSEMA
     Route: 055
  2. FOLIC ACID [Concomitant]
     Indication: VITAMIN SUPPLEMENTATION
     Route: 048
  3. ADVAIR [Concomitant]
     Indication: EMPHYSEMA
     Dosage: 250
     Route: 055
  4. HUMIRA [Suspect]
     Indication: RHEUMATOID ARTHRITIS
     Route: 058
     Dates: start: 20020101
  5. VESICARE [Concomitant]
     Indication: HYPERTONIC BLADDER
     Route: 048
  6. METHOTREXATE [Concomitant]
     Indication: RHEUMATOID ARTHRITIS
     Route: 048
  7. ALPRAZOLAM [Concomitant]
     Indication: ANXIOLYTIC THERAPY
     Route: 048
  8. TRAMADOL HCL [Concomitant]
     Indication: BACK INJURY
     Route: 048
  9. MOBIC [Concomitant]
     Indication: ARTHRITIS
     Route: 048
  10. VENTOLIN [Concomitant]
     Indication: PRODUCT USED FOR UNKNOWN INDICATION
     Route: 055

REACTIONS (6)
  - DRUG EFFECT DECREASED [None]
  - INJECTION SITE PAIN [None]
  - INJECTION SITE HAEMORRHAGE [None]
  - RHEUMATOID ARTHRITIS [None]
  - DRUG DOSE OMISSION [None]
  - DEVICE MALFUNCTION [None]
